FAERS Safety Report 4359394-8 (Version None)
Quarter: 2004Q2

REPORT INFORMATION
  Report Type: 
  Country: None (occurrence: None)
  Receive Date: 20040512
  Receipt Date: 20040428
  Transmission Date: 20050107
  Serious: Yes (Death)
  Sender: FDA-Public Use
  Company Number: USA-2004-0014942

PATIENT
  Age: 56 Year
  Sex: Male

DRUGS (5)
  1. OXYCONTIN [Suspect]
     Indication: PAIN
     Dosage: 80 MG, Q12H, ORAL
     Route: 048
     Dates: end: 20030901
  2. OXYCODONE HCL [Suspect]
     Indication: PAIN
     Dosage: 5 MG, ORAL
     Route: 048
  3. DURAGESIC [Concomitant]
  4. DEXAMETHASONE [Concomitant]
  5. ZYPREXA [Concomitant]

REACTIONS (1)
  - DISEASE PROGRESSION [None]
